FAERS Safety Report 6836310-8 (Version None)
Quarter: 2010Q3

REPORT INFORMATION
  Report Type: 
  Country: None (occurrence: None)
  Receive Date: 20100712
  Receipt Date: 20100712
  Transmission Date: 20110219
  Serious: No
  Sender: FDA-Public Use
  Company Number: None

PATIENT
  Age: 55 Year
  Sex: Female
  Weight: 78.4723 kg

DRUGS (1)
  1. KAPIDEX/DEXLANSOPRAZOLE 60MG TAKEDA [Suspect]
     Indication: HIATUS HERNIA
     Dosage: 60MG 1X IN MORNING
     Dates: start: 20100501, end: 20100708

REACTIONS (3)
  - ALOPECIA [None]
  - PRODUCT SUBSTITUTION ISSUE [None]
  - PRURITUS [None]
